FAERS Safety Report 18821360 (Version 1)
Quarter: 2021Q1

REPORT INFORMATION
  Report Type: Spontaneous
  Country: US (occurrence: US)
  Receive Date: 20210201
  Receipt Date: 20210201
  Transmission Date: 20210419
  Serious: Yes (Hospitalization)
  Sender: FDA-Public Use
  Company Number: None

PATIENT
  Age: 74 Year
  Sex: Male
  Weight: 110 kg

DRUGS (3)
  1. EMPAGLIFLOZIN/METFORMIN (EMPAGLIFLOZIN 5MG/METFORMIN 1000MG 24 HR TAB, [Suspect]
     Active Substance: EMPAGLIFLOZIN\METFORMIN HYDROCHLORIDE
     Indication: CORONARY ARTERIAL STENT INSERTION
     Route: 048
     Dates: start: 20200806, end: 20201006
  2. EMPAGLIFLOZIN/METFORMIN (EMPAGLIFLOZIN 5MG/METFORMIN 1000MG 24 HR TAB, [Suspect]
     Active Substance: EMPAGLIFLOZIN\METFORMIN HYDROCHLORIDE
     Indication: CHRONIC KIDNEY DISEASE
     Route: 048
     Dates: start: 20200806, end: 20201006
  3. EMPAGLIFLOZIN/METFORMIN (EMPAGLIFLOZIN 5MG/METFORMIN 1000MG 24 HR TAB, [Suspect]
     Active Substance: EMPAGLIFLOZIN\METFORMIN HYDROCHLORIDE
     Indication: DIABETES MELLITUS
     Route: 048
     Dates: start: 20200806, end: 20201006

REACTIONS (3)
  - Acute kidney injury [None]
  - Nausea [None]
  - Vomiting [None]

NARRATIVE: CASE EVENT DATE: 20201006
